FAERS Safety Report 9715590 (Version 1)
Quarter: 2013Q4

REPORT INFORMATION
  Report Type: Spontaneous
  Country: US (occurrence: US)
  Receive Date: 20131127
  Receipt Date: 20131127
  Transmission Date: 20140711
  Serious: Yes (Other)
  Sender: FDA-Public Use
  Company Number: US-JNJFOC-20131109215

PATIENT
  Age: 75 Year
  Sex: Female
  Weight: 68.04 kg

DRUGS (1)
  1. LISTERINE MOUTHWASH UNSPECIFIED [Suspect]
     Indication: POISONING
     Dosage: BOTTLES A DAY
     Route: 048

REACTIONS (7)
  - Poisoning deliberate [Unknown]
  - Blindness [Unknown]
  - Bedridden [Unknown]
  - Arthralgia [Unknown]
  - Bladder operation [Unknown]
  - Intestinal operation [Unknown]
  - Incorrect route of drug administration [Unknown]
